FAERS Safety Report 20176658 (Version 1)
Quarter: 2021Q4

REPORT INFORMATION
  Report Type: Spontaneous
  Country: US (occurrence: None)
  Receive Date: 20211209
  Receipt Date: 20211209
  Transmission Date: 20220303
  Serious: No
  Sender: FDA-Public Use
  Company Number: None

PATIENT
  Age: 58 Year
  Sex: Male

DRUGS (1)
  1. IVERMECTIN [Suspect]
     Active Substance: IVERMECTIN

REACTIONS (17)
  - Self-medication [None]
  - Intentional product use issue [None]
  - Electrocardiogram QRS complex prolonged [None]
  - Electrocardiogram QT prolonged [None]
  - Hypotension [None]
  - Pallor [None]
  - Abdominal pain [None]
  - Nausea [None]
  - Vomiting [None]
  - Acidosis [None]
  - Anion gap increased [None]
  - Blood creatinine increased [None]
  - Lipase increased [None]
  - Aspartate aminotransferase increased [None]
  - Alanine aminotransferase increased [None]
  - Fatigue [None]
  - Oxygen saturation decreased [None]
